FAERS Safety Report 13739009 (Version 1)
Quarter: 2017Q3

REPORT INFORMATION
  Report Type: Report from Study
  Country: US (occurrence: US)
  Receive Date: 20170710
  Receipt Date: 20170710
  Transmission Date: 20171127
  Serious: Yes (Other)
  Sender: FDA-Public Use
  Company Number: US-SAOL THERAPEUTICS-2017SAO00080

PATIENT
  Age: 67 Year
  Sex: Female

DRUGS (62)
  1. COMPOUNDED BACLOFEN [Suspect]
     Active Substance: BACLOFEN
     Dosage: 209.34 ?G, \DAY
     Route: 037
     Dates: start: 20150331
  2. COMPOUNDED BACLOFEN [Suspect]
     Active Substance: BACLOFEN
     Dosage: 245.76 ?G, \DAY
     Route: 037
     Dates: start: 20170111, end: 20170117
  3. COMPOUNDED BACLOFEN [Suspect]
     Active Substance: BACLOFEN
     Dosage: 200.13 ?G, \DAY
     Route: 037
     Dates: start: 20170117, end: 20170131
  4. BUPIVACAINE. [Suspect]
     Active Substance: BUPIVACAINE
     Dosage: 12.696 MG, \DAY
     Route: 037
     Dates: start: 20170117, end: 20170131
  5. CLONIDINE. [Suspect]
     Active Substance: CLONIDINE
     Dosage: 60.04 ?G, \DAY
     Route: 037
     Dates: start: 20151210
  6. CLONIDINE. [Suspect]
     Active Substance: CLONIDINE
     Dosage: 200.13 ?G, \DAY
     Route: 037
     Dates: start: 20170131
  7. COMPOUNDED BACLOFEN [Suspect]
     Active Substance: BACLOFEN
     Dosage: 246.21 ?G, \DAY
     Route: 037
     Dates: start: 20151106
  8. DILAUDID [Suspect]
     Active Substance: HYDROMORPHONE HYDROCHLORIDE
     Dosage: 1.7504 MG, \DAY
     Route: 037
     Dates: start: 20151102, end: 20151102
  9. CLONIDINE. [Suspect]
     Active Substance: CLONIDINE
     Dosage: 117.44 ?G, \DAY
     Route: 037
     Dates: start: 20151102
  10. CLONIDINE. [Suspect]
     Active Substance: CLONIDINE
     Dosage: 175.04 ?G, \DAY
     Route: 037
     Dates: start: 20151102
  11. CLONIDINE. [Suspect]
     Active Substance: CLONIDINE
     Dosage: 213.17 ?G, \DAY
     Route: 037
     Dates: start: 20151106
  12. CLONIDINE. [Suspect]
     Active Substance: CLONIDINE
     Dosage: 212.88 ?G, \DAY
     Route: 037
     Dates: start: 20170111, end: 20170117
  13. CLONIDINE. [Suspect]
     Active Substance: CLONIDINE
     Dosage: 190.44 ?G, \DAY
     Route: 037
     Dates: start: 20170117, end: 20170131
  14. CLONIDINE. [Suspect]
     Active Substance: CLONIDINE
     Dosage: 292.89 ?G, \DAY
     Route: 037
     Dates: start: 20170131
  15. MORPHINE [Suspect]
     Active Substance: MORPHINE
     Dosage: 2.0024 MG, \DAY
     Route: 037
     Dates: start: 20150331
  16. COMPOUNDED BACLOFEN [Suspect]
     Active Substance: BACLOFEN
     Dosage: 120.08 ?G, \DAY
     Route: 037
     Dates: start: 20151210
  17. DILAUDID [Suspect]
     Active Substance: HYDROMORPHONE HYDROCHLORIDE
     Dosage: 0.9787 MG, \DAY
     Route: 037
     Dates: start: 20151008
  18. DILAUDID [Suspect]
     Active Substance: HYDROMORPHONE HYDROCHLORIDE
     Dosage: 1.5623 MG, \DAY
     Route: 037
     Dates: start: 20151008
  19. DILAUDID [Suspect]
     Active Substance: HYDROMORPHONE HYDROCHLORIDE
     Dosage: 2.001 MG, \DAY
     Route: 037
     Dates: start: 20170131
  20. BUPIVACAINE. [Suspect]
     Active Substance: BUPIVACAINE
     Dosage: 5.006 MG, \DAY
     Route: 037
     Dates: start: 20150331
  21. BUPIVACAINE. [Suspect]
     Active Substance: BUPIVACAINE
     Dosage: 14.211 MG, \DAY
     Route: 037
     Dates: start: 20151106
  22. BUPIVACAINE. [Suspect]
     Active Substance: BUPIVACAINE
     Dosage: 8.192 MG, \DAY
     Route: 037
     Dates: start: 20170111, end: 20170117
  23. CLONIDINE. [Suspect]
     Active Substance: CLONIDINE
     Dosage: 100.07 ?G, \DAY
     Route: 037
     Dates: start: 20170117, end: 20170131
  24. COMPOUNDED BACLOFEN [Suspect]
     Active Substance: BACLOFEN
     Dosage: 234.89 ?G, \DAY
     Route: 037
     Dates: start: 20151102
  25. COMPOUNDED BACLOFEN [Suspect]
     Active Substance: BACLOFEN
     Dosage: 350.08 ?G, \DAY
     Route: 037
     Dates: start: 20151102
  26. COMPOUNDED BACLOFEN [Suspect]
     Active Substance: BACLOFEN
     Dosage: 426.33 ?G, \DAY
     Route: 037
     Dates: start: 20151106
  27. COMPOUNDED BACLOFEN [Suspect]
     Active Substance: BACLOFEN
     Dosage: 585.78 MG, \DAY
     Route: 037
     Dates: start: 20170131
  28. DILAUDID [Suspect]
     Active Substance: HYDROMORPHONE HYDROCHLORIDE
     Dosage: 1 MG, \DAY
     Route: 037
     Dates: start: 20170117, end: 20170131
  29. BUPIVACAINE. [Suspect]
     Active Substance: BUPIVACAINE
     Dosage: 6.978 MG, \DAY
     Route: 037
     Dates: start: 20150331
  30. BUPIVACAINE. [Suspect]
     Active Substance: BUPIVACAINE
     Dosage: 6.525 MG, \DAY
     Route: 037
     Dates: start: 20151008
  31. CLONIDINE. [Suspect]
     Active Substance: CLONIDINE
     Dosage: 122.88 ?G, \DAY
     Route: 037
     Dates: start: 20170111, end: 20170117
  32. COMPOUNDED BACLOFEN [Suspect]
     Active Substance: BACLOFEN
     Dosage: 150.18 ?G, \DAY
     Route: 037
     Dates: start: 20150331
  33. COMPOUNDED BACLOFEN [Suspect]
     Active Substance: BACLOFEN
     Dosage: 195.74 ?G, \DAY
     Route: 037
     Dates: start: 20151008
  34. COMPOUNDED BACLOFEN [Suspect]
     Active Substance: BACLOFEN
     Dosage: 237.30 ?G, \DAY
     Route: 037
     Dates: start: 20151210
  35. COMPOUNDED BACLOFEN [Suspect]
     Active Substance: BACLOFEN
     Dosage: 425.75 ?G, \DAY
     Route: 037
     Dates: start: 20170111, end: 20170117
  36. DILAUDID [Suspect]
     Active Substance: HYDROMORPHONE HYDROCHLORIDE
     Dosage: 1.1744 MG, \DAY
     Route: 037
     Dates: start: 20151102, end: 20151210
  37. MORPHINE [Suspect]
     Active Substance: MORPHINE
     Dosage: 2.7913 MG, \DAY
     Route: 037
     Dates: start: 20150331
  38. DILAUDID [Suspect]
     Active Substance: HYDROMORPHONE HYDROCHLORIDE
     Dosage: 2.1317 MG, \DAY
     Route: 037
     Dates: start: 20151106
  39. DILAUDID [Suspect]
     Active Substance: HYDROMORPHONE HYDROCHLORIDE
     Dosage: 2.128 MG, \DAY
     Route: 037
     Dates: start: 20170111, end: 20170117
  40. BUPIVACAINE. [Suspect]
     Active Substance: BUPIVACAINE
     Dosage: 6.671 MG, \DAY
     Route: 037
     Dates: start: 20170117, end: 20170131
  41. CLONIDINE. [Suspect]
     Active Substance: CLONIDINE
     Dosage: 97.87 ?G, \DAY
     Route: 037
     Dates: start: 20151008
  42. CLONIDINE. [Suspect]
     Active Substance: CLONIDINE
     Dosage: 156.23 ?G, \DAY
     Route: 037
     Dates: start: 20151008
  43. CLONIDINE. [Suspect]
     Active Substance: CLONIDINE
     Dosage: 123.11 ?G, \DAY
     Route: 037
     Dates: start: 20151106
  44. COMPOUNDED BACLOFEN [Suspect]
     Active Substance: BACLOFEN
     Dosage: 312.47 ?G, \DAY
     Route: 037
     Dates: start: 20151008
  45. COMPOUNDED BACLOFEN [Suspect]
     Active Substance: BACLOFEN
     Dosage: 380.88 ?G, \DAY
     Route: 037
     Dates: start: 20170117, end: 20170131
  46. DILAUDID [Suspect]
     Active Substance: HYDROMORPHONE HYDROCHLORIDE
     Dosage: 2.928 MG, \DAY
     Route: 037
     Dates: start: 20170131
  47. BUPIVACAINE. [Suspect]
     Active Substance: BUPIVACAINE
     Dosage: 8.207 MG, \DAY
     Route: 037
     Dates: start: 20151106
  48. BUPIVACAINE. [Suspect]
     Active Substance: BUPIVACAINE
     Dosage: 14.192 MG, \DAY
     Route: 037
     Dates: start: 20170111, end: 20170117
  49. BUPIVACAINE. [Suspect]
     Active Substance: BUPIVACAINE
     Dosage: 13.342 MG, \DAY
     Route: 037
     Dates: start: 20170131
  50. BUPIVACAINE. [Suspect]
     Active Substance: BUPIVACAINE
     Dosage: 19.526 MG, \DAY
     Route: 037
     Dates: start: 20170131
  51. COMPOUNDED BACLOFEN [Suspect]
     Active Substance: BACLOFEN
     Dosage: 400.26 ?G, \DAY
     Route: 037
     Dates: start: 20170131
  52. DILAUDID [Suspect]
     Active Substance: HYDROMORPHONE HYDROCHLORIDE
     Dosage: 1.2311 MG, \DAY
     Route: 037
     Dates: start: 20151106
  53. DILAUDID [Suspect]
     Active Substance: HYDROMORPHONE HYDROCHLORIDE
     Dosage: 1.228 MG, \DAY
     Route: 037
     Dates: start: 20170111, end: 20170111
  54. DILAUDID [Suspect]
     Active Substance: HYDROMORPHONE HYDROCHLORIDE
     Dosage: 1.904 MG, \DAY
     Route: 037
     Dates: start: 20170117, end: 20170131
  55. BUPIVACAINE. [Suspect]
     Active Substance: BUPIVACAINE
     Dosage: 10.416 MG, \DAY
     Route: 037
     Dates: start: 20151008
  56. BUPIVACAINE. [Suspect]
     Active Substance: BUPIVACAINE
     Dosage: 7.83 MG, \DAY
     Route: 037
     Dates: start: 20151102
  57. BUPIVACAINE. [Suspect]
     Active Substance: BUPIVACAINE
     Dosage: 11.669 MG, \DAY
     Route: 037
     Dates: start: 20151102
  58. BUPIVACAINE. [Suspect]
     Active Substance: BUPIVACAINE
     Dosage: 4.003 MG, \DAY
     Route: 037
     Dates: start: 20151210
  59. CLONIDINE. [Suspect]
     Active Substance: CLONIDINE
     Dosage: 75.09 ?G, \DAY
     Route: 037
     Dates: start: 20150331
  60. CLONIDINE. [Suspect]
     Active Substance: CLONIDINE
     Dosage: 104.67 ?G, \DAY
     Route: 037
     Dates: start: 20150331
  61. FENTANYL. [Suspect]
     Active Substance: FENTANYL
     Dosage: 100.7 ?G, \DAY
     Route: 037
     Dates: start: 20151210
  62. FENTANYL. [Suspect]
     Active Substance: FENTANYL
     Dosage: 197.75 ?G, \DAY
     Route: 037
     Dates: start: 20151210

REACTIONS (12)
  - Influenza like illness [Recovered/Resolved]
  - Dizziness [Recovered/Resolved]
  - Drug tolerance [Unknown]
  - Pain [Recovered/Resolved]
  - Sedation [Recovered/Resolved]
  - Drug withdrawal syndrome [Recovered/Resolved]
  - Anxiety [Not Recovered/Not Resolved]
  - Fatigue [Recovered/Resolved]
  - Toxicity to various agents [Recovered/Resolved]
  - Device battery issue [Recovered/Resolved]
  - Hyperaesthesia [Recovered/Resolved]
  - Implant site extravasation [Recovered/Resolved]

NARRATIVE: CASE EVENT DATE: 20150914
